FAERS Safety Report 5071266-2 (Version None)
Quarter: 2006Q3

REPORT INFORMATION
  Report Type: 
  Country: None (occurrence: None)
  Receive Date: 20060804
  Receipt Date: 20060616
  Transmission Date: 20061208
  Serious: Yes (Hospitalization)
  Sender: FDA-Public Use
  Company Number: DE-AVENTIS-200611789DE

PATIENT
  Age: 91 Year
  Sex: Male

DRUGS (2)
  1. EUGLUCON [Suspect]
     Indication: DIABETES MELLITUS NON-INSULIN-DEPENDENT
     Route: 048
     Dates: end: 20060426
  2. ACTOS [Concomitant]
     Indication: DIABETES MELLITUS NON-INSULIN-DEPENDENT
     Dosage: DOSE: NOT REPORTED
     Route: 048

REACTIONS (2)
  - COORDINATION ABNORMAL [None]
  - TREMOR [None]
